FAERS Safety Report 10207093 (Version 1)
Quarter: 2014Q2

REPORT INFORMATION
  Report Type: Spontaneous
  Country: US (occurrence: None)
  Receive Date: 20140527
  Receipt Date: 20140527
  Transmission Date: 20141212
  Serious: Yes (Other)
  Sender: FDA-Public Use
  Company Number: 2014-US-006113

PATIENT
  Age: 61 Year
  Sex: Female

DRUGS (1)
  1. XYREM [Suspect]
     Indication: NARCOLEPSY
     Route: 048
     Dates: start: 200702, end: 2007

REACTIONS (5)
  - Tendon rupture [None]
  - Sleep disorder [None]
  - Toothache [None]
  - Impaired work ability [None]
  - Pain in extremity [None]
